FAERS Safety Report 10190666 (Version 2)
Quarter: 2014Q2

REPORT INFORMATION
  Report Type: Report from Study
  Country: US (occurrence: US)
  Receive Date: 20140523
  Receipt Date: 20140616
  Transmission Date: 20141212
  Serious: Yes (Hospitalization)
  Sender: FDA-Public Use
  Company Number: US-BIOGENIDEC-2014BI044007

PATIENT
  Age: 45 Year
  Sex: Female
  Weight: 104 kg

DRUGS (4)
  1. TYSABRI [Suspect]
     Indication: CROHN^S DISEASE
     Route: 042
     Dates: start: 20140217, end: 20140324
  2. TOPROL XL [Concomitant]
     Indication: HYPERTENSION
     Route: 048
     Dates: start: 20101114
  3. VALSARTAN [Concomitant]
     Route: 048
     Dates: start: 20140328
  4. IMODIUM [Concomitant]

REACTIONS (2)
  - Crohn^s disease [Recovered/Resolved]
  - Dehydration [Recovered/Resolved]
